FAERS Safety Report 14344010 (Version 1)
Quarter: 2018Q1

REPORT INFORMATION
  Report Type: Spontaneous
  Country: RU (occurrence: RU)
  Receive Date: 20180102
  Receipt Date: 20180102
  Transmission Date: 20180509
  Serious: Yes (Hospitalization)
  Sender: FDA-Public Use
  Company Number: RU-SA-2017SA260026

PATIENT
  Age: 69 Year
  Sex: Male
  Weight: 80 kg

DRUGS (3)
  1. ACETYLSALICYLIC ACID [Suspect]
     Active Substance: ASPIRIN
     Indication: ACUTE MYOCARDIAL INFARCTION
     Route: 048
     Dates: start: 20171108, end: 20171108
  2. PLAVIX [Suspect]
     Active Substance: CLOPIDOGREL BISULFATE
     Indication: ACUTE MYOCARDIAL INFARCTION
     Route: 048
     Dates: start: 20171108, end: 20171108
  3. CLEXANE [Suspect]
     Active Substance: ENOXAPARIN SODIUM
     Indication: ACUTE MYOCARDIAL INFARCTION
     Route: 058
     Dates: start: 20171108, end: 20171108

REACTIONS (3)
  - Erosive duodenitis [Unknown]
  - Oesophagitis [Unknown]
  - Gastritis erosive [Unknown]

NARRATIVE: CASE EVENT DATE: 20171108
